FAERS Safety Report 24125946 (Version 3)
Quarter: 2024Q3

REPORT INFORMATION
  Report Type: Spontaneous
  Country: CA (occurrence: CA)
  Receive Date: 20240723
  Receipt Date: 20240919
  Transmission Date: 20241016
  Serious: Yes (Other)
  Sender: BAUSCH AND LOMB
  Company Number: CA-BAUSCH-BL-2024-010981

PATIENT
  Age: 43 Year
  Sex: Female

DRUGS (2)
  1. UCERIS [Suspect]
     Active Substance: BUDESONIDE
     Indication: Crohn^s disease
     Route: 054
     Dates: start: 20240620, end: 20240624
  2. UCERIS [Suspect]
     Active Substance: BUDESONIDE
     Indication: Product use in unapproved indication
     Dosage: INCREASED TWICE PER DAY
     Route: 054
     Dates: start: 20240625

REACTIONS (7)
  - Crohn^s disease [Not Recovered/Not Resolved]
  - Symptom recurrence [Not Recovered/Not Resolved]
  - Drug ineffective for unapproved indication [Unknown]
  - Product use in unapproved indication [Unknown]
  - Device delivery system issue [Unknown]
  - Product quality issue [Unknown]
  - Product availability issue [Unknown]

NARRATIVE: CASE EVENT DATE: 20240620
